FAERS Safety Report 7018818-8 (Version None)
Quarter: 2010Q3

REPORT INFORMATION
  Report Type: 
  Country: None (occurrence: None)
  Receive Date: 20100928
  Receipt Date: 20100916
  Transmission Date: 20110219
  Serious: Yes (Hospitalization)
  Sender: FDA-Public Use
  Company Number: US-PFIZER INC-2010122421

PATIENT
  Age: 61 Year
  Sex: Female

DRUGS (10)
  1. ATENOLOL [Suspect]
     Dosage: 100 MG, DAILY
  2. METFORMIN HCL [Suspect]
  3. GLIBENCLAMIDE [Suspect]
  4. ONGLYZA [Suspect]
     Indication: DIABETES MELLITUS
     Dosage: 2.5 MG FOR 8 WEEKS
     Route: 048
     Dates: start: 20100301, end: 20100701
  5. PRAVACHOL [Suspect]
     Dosage: 20 MG, DAILY
  6. STARLIX [Suspect]
     Indication: DIABETES MELLITUS
     Dosage: 120 MG, 3X/DAY
     Route: 048
     Dates: end: 20100701
  7. BENICAR [Suspect]
     Dosage: 40 MG, DAILY
  8. ZETIA [Suspect]
     Dosage: 10 MG, DAILY
  9. MAVIK [Suspect]
     Dosage: 4 MG, 2X/DAY
  10. AMBIEN [Suspect]
     Dosage: 10 MG, DAILY

REACTIONS (1)
  - PANCREATITIS ACUTE [None]
